FAERS Safety Report 5885577-1 (Version None)
Quarter: 2008Q3

REPORT INFORMATION
  Report Type: 
  Country: None (occurrence: None)
  Receive Date: 20080916
  Receipt Date: 20080903
  Transmission Date: 20090109
  Serious: Yes (Hospitalization)
  Sender: FDA-Public Use
  Company Number: JP-B.I. PHARMACEUTICALS,INC./RIDGEFIELD-2008-DE-04939GD

PATIENT
  Sex: Male

DRUGS (7)
  1. MOBIC [Suspect]
     Indication: RHEUMATOID ARTHRITIS
     Dosage: 10MG
     Route: 048
     Dates: end: 20050131
  2. LANSOPRAZOLE [Suspect]
     Indication: HELICOBACTER INFECTION
     Dosage: 30MG
     Dates: start: 20041201, end: 20050128
  3. CLARITHROMYCIN [Suspect]
     Indication: HELICOBACTER INFECTION
     Dosage: 60MG
     Dates: start: 20050119, end: 20050128
  4. AMOXICILLIN [Suspect]
     Indication: HELICOBACTER INFECTION
     Dosage: 400MG
     Dates: start: 20050119, end: 20050128
  5. PREDNISOLONE [Concomitant]
     Indication: RHEUMATOID ARTHRITIS
     Dosage: 5MG
     Route: 048
  6. DAONIL [Concomitant]
     Dosage: 2.5MG
     Route: 048
  7. BASEN [Concomitant]
     Dosage: .6MG
     Route: 048

REACTIONS (1)
  - ERYTHEMA [None]
